FAERS Safety Report 5684321-0 (Version None)
Quarter: 2008Q1

REPORT INFORMATION
  Report Type: 
  Country: None (occurrence: None)
  Receive Date: 20080328
  Receipt Date: 20080320
  Transmission Date: 20080703
  Serious: Yes (Hospitalization)
  Sender: FDA-Public Use
  Company Number: A0716843A

PATIENT
  Age: 77 Year
  Sex: Female
  Weight: 68.4 kg

DRUGS (2)
  1. PAZOPANIB [Suspect]
     Indication: BREAST CANCER METASTATIC
     Dosage: 800MG PER DAY
     Route: 048
     Dates: start: 20080306
  2. LAPATINIB [Suspect]
     Indication: BREAST CANCER METASTATIC
     Dosage: 1500MG PER DAY
     Route: 048
     Dates: start: 20080306

REACTIONS (3)
  - DEHYDRATION [None]
  - DIARRHOEA [None]
  - PAROTITIS [None]
